FAERS Safety Report 4994430-7 (Version None)
Quarter: 2006Q1

REPORT INFORMATION
  Report Type: 
  Country: None (occurrence: None)
  Receive Date: 20060313
  Receipt Date: 20060111
  Transmission Date: 20060701
  Serious: No
  Sender: FDA-Public Use
  Company Number: 2005-BP-19577BP

PATIENT
  Sex: Female

DRUGS (4)
  1. SPIRIVA [Suspect]
     Indication: CHRONIC OBSTRUCTIVE PULMONARY DISEASE
     Dosage: 18 MCG (18 MCG, ) IH
     Route: 055
     Dates: start: 20041101
  2. SPIRIVA [Suspect]
     Indication: DYSPNOEA
     Dosage: 18 MCG (18 MCG, ) IH
     Route: 055
     Dates: start: 20041101
  3. SPIRIVA [Suspect]
     Indication: PNEUMONIA
     Dosage: 18 MCG (18 MCG, ) IH
     Route: 055
     Dates: start: 20041101
  4. PREMARIN [Concomitant]

REACTIONS (2)
  - DYSGEUSIA [None]
  - DYSPNOEA EXACERBATED [None]
